FAERS Safety Report 8563117-6 (Version None)
Quarter: 2012Q3

REPORT INFORMATION
  Report Type: 
  Country: None (occurrence: None)
  Receive Date: 20120802
  Receipt Date: 20120724
  Transmission Date: 20120928
  Serious: No
  Sender: FDA-Public Use
  Company Number: US-AMGEN-USASP2012045982

PATIENT
  Age: 65 Year
  Sex: Female

DRUGS (1)
  1. ENBREL [Suspect]
     Indication: RHEUMATOID ARTHRITIS
     Dosage: 50 MG, QWK
     Dates: start: 20120203

REACTIONS (7)
  - MUSCLE SPASMS [None]
  - TRISMUS [None]
  - BRONCHITIS [None]
  - TINNITUS [None]
  - RHINITIS ALLERGIC [None]
  - TRIGGER FINGER [None]
  - DEAFNESS [None]
